FAERS Safety Report 8776638 (Version 1)
Quarter: 2012Q4

REPORT INFORMATION
  Report Type: 
  Country: US (occurrence: US)
  Receive Date: 20120910
  Receipt Date: 20120910
  Transmission Date: 20130627
  Serious: Yes (Hospitalization, Other)
  Sender: FDA-Public Use
  Company Number: US-ASTRAZENECA-2012SE69102

PATIENT
  Age: 61 Year
  Sex: Male
  Weight: 70.3 kg

DRUGS (9)
  1. NEXIUM [Suspect]
     Indication: GASTROOESOPHAGEAL REFLUX DISEASE
     Route: 048
     Dates: start: 2008
  2. SEROQUEL XR [Suspect]
     Indication: BIPOLAR DISORDER
     Route: 048
     Dates: start: 200706
  3. SINGULAIR [Concomitant]
     Indication: ASTHMA
     Route: 048
  4. THEOPHYLLINE [Concomitant]
     Indication: ASTHMA
     Route: 048
  5. PRISTIQ [Concomitant]
     Indication: DEPRESSION
     Route: 048
  6. REGLAN [Concomitant]
     Route: 048
  7. PHENERGAN [Concomitant]
     Indication: NAUSEA
     Dosage: 25MG Q6HR PRN
     Route: 048
  8. AMITIZA [Concomitant]
     Indication: CONSTIPATION
     Route: 048
  9. ABILIFY [Concomitant]
     Indication: DEPRESSION
     Route: 048

REACTIONS (6)
  - Colonic obstruction [Unknown]
  - Fall [Unknown]
  - Wrist fracture [Unknown]
  - Muscular weakness [Unknown]
  - Dyspepsia [Unknown]
  - Off label use [Unknown]
